FAERS Safety Report 8819005 (Version 1)
Quarter: 2012Q4

REPORT INFORMATION
  Report Type: Spontaneous
  Country: TW (occurrence: None)
  Receive Date: 20121003
  Receipt Date: 20121003
  Transmission Date: 20130627
  Serious: Yes (Hospitalization)
  Sender: FDA-Public Use
  Company Number: DSA_59873_2012

PATIENT
  Age: 30 Year
  Sex: Female

DRUGS (7)
  1. BUPROPION HYDROCHLORIDE [Suspect]
     Indication: PRODUCT USED FOR UNKNOWN INDICATION
     Dosage: (1-month prescription of 300 mg)
  2. BUPROPION HYDROCHLORIDE [Suspect]
     Indication: PRODUCT USED FOR UNKNOWN INDICATION
     Dosage: (300 mg, frequency unspecified)
  3. VENLAFAXINE [Suspect]
     Indication: PRODUCT USED FOR UNKNOWN INDICATION
     Dosage: (1-month prescription of 150 mg)
  4. VENLAFAXINE [Suspect]
     Indication: PRODUCT USED FOR UNKNOWN INDICATION
     Dosage: (150 mg, frequency unspecified)
  5. LORAZEPAM [Suspect]
     Indication: PRODUCT USED FOR UNKNOWN INDICATION
     Dosage: (1-month prescription of 3 mg)
  6. LORAZEPAM [Suspect]
     Indication: PRODUCT USED FOR UNKNOWN INDICATION
  7. LORAZEPAM [Suspect]
     Indication: PRODUCT USED FOR UNKNOWN INDICATION
     Dosage: (3 mg, frequency unspecified)

REACTIONS (30)
  - Suicide attempt [None]
  - Myoclonus [None]
  - Pyrexia [None]
  - Tachycardia [None]
  - Oxygen saturation decreased [None]
  - Electrocardiogram QRS complex prolonged [None]
  - Electrocardiogram QRS complex abnormal [None]
  - Somnolence [None]
  - Confusional state [None]
  - Respiratory distress [None]
  - Blood pressure decreased [None]
  - Leukocytosis [None]
  - Blood creatine phosphokinase increased [None]
  - Blood creatinine increased [None]
  - Serotonin syndrome [None]
  - Agitation [None]
  - Altered state of consciousness [None]
  - Alanine aminotransferase increased [None]
  - Intentional overdose [None]
  - Dyskinesia [None]
  - Akathisia [None]
  - Drug withdrawal syndrome [None]
  - Choreoathetosis [None]
  - Memory impairment [None]
  - Communication disorder [None]
  - Executive dysfunction [None]
  - Toxicity to various agents [None]
  - Hypoxia [None]
  - Cerebral disorder [None]
  - Necrosis [None]
